FAERS Safety Report 12085182 (Version 1)
Quarter: 2016Q1

REPORT INFORMATION
  Report Type: Spontaneous
  Country: IT (occurrence: IT)
  Receive Date: 20160217
  Receipt Date: 20160217
  Transmission Date: 20160526
  Serious: Yes (Death)
  Sender: FDA-Public Use
  Company Number: IT-JNJFOC-20160214760

PATIENT
  Age: 94 Year
  Sex: Female

DRUGS (6)
  1. XARELTO [Suspect]
     Active Substance: RIVAROXABAN
     Indication: CEREBROVASCULAR ACCIDENT PROPHYLAXIS
     Route: 048
     Dates: start: 20150101, end: 20160104
  2. DIDROGYL [Concomitant]
     Dosage: 1.5 MG/10 ML
     Route: 048
  3. BIFRIL [Concomitant]
     Active Substance: ZOFENOPRIL
     Route: 048
  4. LASIX [Concomitant]
     Active Substance: FUROSEMIDE
     Route: 048
  5. CORDARONE [Concomitant]
     Active Substance: AMIODARONE HYDROCHLORIDE
     Route: 048
  6. XARELTO [Suspect]
     Active Substance: RIVAROXABAN
     Indication: ATRIAL FIBRILLATION
     Route: 048
     Dates: start: 20150101, end: 20160104

REACTIONS (4)
  - Loss of consciousness [Fatal]
  - Cerebral haemorrhage [Fatal]
  - Cardiac arrest [Fatal]
  - Injury [Fatal]

NARRATIVE: CASE EVENT DATE: 20160104
